FAERS Safety Report 13147525 (Version 3)
Quarter: 2017Q1

REPORT INFORMATION
  Report Type: Spontaneous
  Country: IT (occurrence: IT)
  Receive Date: 20170125
  Receipt Date: 20170224
  Transmission Date: 20170428
  Serious: Yes (Hospitalization, Other)
  Sender: FDA-Public Use
  Company Number: IT-ACCORD-044687

PATIENT
  Age: 49 Year
  Sex: Male
  Weight: 66 kg

DRUGS (5)
  1. FLUOROURACIL ACCORD [Suspect]
     Active Substance: FLUOROURACIL
     Indication: COLON CANCER
     Dosage: STRENGTH: 50 MG/ML
     Route: 041
     Dates: start: 20160727, end: 20160921
  2. AVASTIN [Suspect]
     Active Substance: BEVACIZUMAB
     Indication: COLON CANCER
     Dosage: STRENGTH: 100 MG; 400MG
     Route: 041
     Dates: start: 20160727, end: 20161207
  3. IRINOTECAN FRESENIUS [Suspect]
     Active Substance: IRINOTECAN
     Indication: COLON CANCER
     Dosage: STRENGTH: 20 MG/ML
     Route: 041
     Dates: start: 20160727, end: 20160921
  4. CALCIO LEVOFOLINATO TEVA [Suspect]
     Active Substance: LEUCOVORIN CALCIUM
     Indication: COLON CANCER
     Dosage: STRENGTH: 100 MG
     Route: 041
     Dates: start: 20160727, end: 20160921
  5. OXALIPLATIN SUN [Suspect]
     Active Substance: OXALIPLATIN
     Indication: COLON CANCER
     Dosage: STRENGTH: 5 MG/ML
     Route: 041
     Dates: start: 20160727, end: 20160921

REACTIONS (2)
  - Cerebral ischaemia [Recovered/Resolved with Sequelae]
  - Neutropenia [Recovered/Resolved]

NARRATIVE: CASE EVENT DATE: 20160921
